FAERS Safety Report 8205742-8 (Version None)
Quarter: 2012Q1

REPORT INFORMATION
  Report Type: 
  Country: None (occurrence: None)
  Receive Date: 20120313
  Receipt Date: 20120309
  Transmission Date: 20120608
  Serious: Yes (Hospitalization)
  Sender: FDA-Public Use
  Company Number: US-AMGEN-USASP2011025972

PATIENT
  Age: 53 Year
  Sex: Female
  Weight: 47.619 kg

DRUGS (5)
  1. MAXALT [Concomitant]
     Dosage: 10 MG, UNK
  2. COZAAR [Concomitant]
     Dosage: 50 MG, ONE TIME DOSE
  3. COZAAR [Concomitant]
     Dosage: 100 MG, UNK
     Dates: start: 20110517
  4. PROLIA [Suspect]
     Indication: OSTEOPOROSIS POSTMENOPAUSAL
     Dosage: 60 MG, Q6MO
     Route: 058
     Dates: start: 20110513, end: 20110513
  5. PROTONIX [Concomitant]
     Dosage: 50 MG, UNK

REACTIONS (1)
  - HYPERTENSION [None]
